FAERS Safety Report 5297580-3 (Version None)
Quarter: 2007Q2

REPORT INFORMATION
  Report Type: 
  Country: None (occurrence: None)
  Receive Date: 20070416
  Receipt Date: 20070410
  Transmission Date: 20071010
  Serious: Yes (Death, Other)
  Sender: FDA-Public Use
  Company Number: DE-AVENTIS-200710216DE

PATIENT
  Sex: Male

DRUGS (2)
  1. CLEXANE MULTI INJEKTIONSLOESUNG [Suspect]
     Dosage: DOSE: NOT REPORTED
     Dates: start: 20061201
  2. CLEXANE MULTI INJEKTIONSLOESUNG [Suspect]

REACTIONS (3)
  - PHARMACEUTICAL PRODUCT COMPLAINT [None]
  - PULMONARY EMBOLISM [None]
  - THROMBOSIS [None]
